FAERS Safety Report 6226887-8 (Version None)
Quarter: 2009Q2

REPORT INFORMATION
  Report Type: 
  Country: None (occurrence: None)
  Receive Date: 20090612
  Receipt Date: 20090608
  Transmission Date: 20091009
  Serious: Yes (Hospitalization)
  Sender: FDA-Public Use
  Company Number: NZ-ASTRAZENECA-2009SE02331

PATIENT
  Age: 71 Year
  Sex: Female

DRUGS (1)
  1. LOSEC [Suspect]
     Dosage: DAILY
     Route: 048
     Dates: start: 19980323, end: 19990207

REACTIONS (1)
  - NEOPLASM MALIGNANT [None]
